FAERS Safety Report 5075191-2 (Version None)
Quarter: 2006Q3

REPORT INFORMATION
  Report Type: 
  Country: None (occurrence: None)
  Receive Date: 20060803
  Receipt Date: 20060803
  Transmission Date: 20061208
  Serious: Yes (Disabling)
  Sender: FDA-Public Use
  Company Number: None

PATIENT
  Age: 57 Year
  Sex: Male
  Weight: 43.5907 kg

DRUGS (1)
  1. ERBITUX [Suspect]
     Indication: PHARYNGEAL CANCER STAGE UNSPECIFIED
     Dosage: 570MG ONCE IV
     Route: 042
     Dates: start: 20060801, end: 20060801

REACTIONS (13)
  - APNOEA [None]
  - CARDIO-RESPIRATORY ARREST [None]
  - DYSPNOEA [None]
  - HEART RATE DECREASED [None]
  - HYPOTENSION [None]
  - HYPOVENTILATION [None]
  - INCREASED VISCOSITY OF BRONCHIAL SECRETION [None]
  - INFUSION RELATED REACTION [None]
  - PULSE ABNORMAL [None]
  - PULSE PRESSURE DECREASED [None]
  - THERAPEUTIC RESPONSE DECREASED [None]
  - UNRESPONSIVE TO STIMULI [None]
  - WHEEZING [None]
